FAERS Safety Report 5812224-7 (Version None)
Quarter: 2008Q3

REPORT INFORMATION
  Report Type: 
  Country: None (occurrence: None)
  Receive Date: 20080714
  Receipt Date: 20080626
  Transmission Date: 20090109
  Serious: Yes (Life-Threatening)
  Sender: FDA-Public Use
  Company Number: 19705

PATIENT
  Age: 60 Year
  Sex: Female

DRUGS (4)
  1. ANZATAX. MFR: MAYNE [Suspect]
     Dosage: 80 MG IV
     Route: 042
     Dates: start: 20080618, end: 20080618
  2. TROPISETRON [Concomitant]
  3. DEXAMETHASONE [Concomitant]
  4. TRIMETON [Concomitant]

REACTIONS (2)
  - HYPERSENSITIVITY [None]
  - LOSS OF CONSCIOUSNESS [None]
